FAERS Safety Report 17387039 (Version 1)
Quarter: 2020Q1

REPORT INFORMATION
  Report Type: Other
  Country: TR (occurrence: TR)
  Receive Date: 20200206
  Receipt Date: 20200206
  Transmission Date: 20200409
  Serious: Yes (Hospitalization, Other)
  Sender: FDA-Public Use
  Company Number: TR-PURDUE-CAN-2020-0010571

PATIENT
  Age: 14 Year
  Sex: Female

DRUGS (3)
  1. INDOMETACIN [Interacting]
     Active Substance: INDOMETHACIN
     Indication: DYSMENORRHOEA
     Dosage: UNK
     Route: 065
  2. NON-PMN METHYLPHENIDATE HYDROCHLORIDE [Suspect]
     Active Substance: METHYLPHENIDATE HYDROCHLORIDE
     Indication: ATTENTION DEFICIT/HYPERACTIVITY DISORDER
     Dosage: 36 MG, DAILY
     Route: 065
  3. NON-PMN METHYLPHENIDATE HYDROCHLORIDE [Interacting]
     Active Substance: METHYLPHENIDATE HYDROCHLORIDE
     Dosage: 27 MG, DAILY
     Route: 065

REACTIONS (2)
  - Drug interaction [Recovered/Resolved]
  - Hallucination, visual [Recovered/Resolved]
